FAERS Safety Report 4897519-6 (Version None)
Quarter: 2006Q1

REPORT INFORMATION
  Report Type: 
  Country: None (occurrence: None)
  Receive Date: 20060130
  Receipt Date: 20060130
  Transmission Date: 20060701
  Serious: Yes (Hospitalization)
  Sender: FDA-Public Use
  Company Number: None

PATIENT
  Age: 57 Year
  Sex: Male
  Weight: 76 kg

DRUGS (2)
  1. CETUXIMAB [Suspect]
     Indication: NON-SMALL CELL LUNG CANCER
     Dosage: 250 MG/M2 IV Q WEEK
     Route: 042
     Dates: start: 20051109
  2. PEMETREXED [Suspect]
     Dosage: 500 MG/M2 IV Q 3 W
     Route: 042
     Dates: start: 20051026

REACTIONS (2)
  - VASCULAR STENT INSERTION [None]
  - VEIN DISORDER [None]
